FAERS Safety Report 26019749 (Version 1)
Quarter: 2025Q4

REPORT INFORMATION
  Report Type: Spontaneous
  Country: CN (occurrence: CN)
  Receive Date: 20251110
  Receipt Date: 20251110
  Transmission Date: 20260118
  Serious: Yes (Other)
  Sender: PFIZER
  Company Number: CN-PFIZER INC-PV202500131459

PATIENT
  Age: 63 Year
  Sex: Female
  Weight: 70 kg

DRUGS (2)
  1. TIGECYCLINE [Suspect]
     Active Substance: TIGECYCLINE
     Indication: Interstitial lung disease
     Dosage: PUMP INJECTION
     Dates: start: 20251025, end: 20251103
  2. SODIUM CHLORIDE [Suspect]
     Active Substance: SODIUM CHLORIDE
     Indication: Vehicle solution use
     Dosage: PUMP INJECTION
     Dates: start: 20251025, end: 20251103

REACTIONS (4)
  - Blood fibrinogen decreased [Not Recovered/Not Resolved]
  - Fibrin decreased [Not Recovered/Not Resolved]
  - Diarrhoea [Not Recovered/Not Resolved]
  - Faeces discoloured [Not Recovered/Not Resolved]

NARRATIVE: CASE EVENT DATE: 20251027
